FAERS Safety Report 14470950 (Version 1)
Quarter: 2018Q1

REPORT INFORMATION
  Report Type: Spontaneous
  Country: US (occurrence: US)
  Receive Date: 20180130
  Receipt Date: 20180130
  Transmission Date: 20180509
  Serious: No
  Sender: FDA-Public Use
  Company Number: None

PATIENT
  Age: 35 Year
  Sex: Female
  Weight: 130.5 kg

DRUGS (1)
  1. CHANTIX [Suspect]
     Active Substance: VARENICLINE TARTRATE
     Indication: SMOKING CESSATION THERAPY
     Route: 048
     Dates: start: 20180123

REACTIONS (6)
  - Asthenia [None]
  - Musculoskeletal stiffness [None]
  - Middle insomnia [None]
  - Sleep disorder [None]
  - Dizziness [None]
  - Pain [None]

NARRATIVE: CASE EVENT DATE: 20180129
